FAERS Safety Report 5297306-3 (Version None)
Quarter: 2007Q2

REPORT INFORMATION
  Report Type: 
  Country: None (occurrence: None)
  Receive Date: 20070409
  Receipt Date: 20070323
  Transmission Date: 20071010
  Serious: Yes (Hospitalization)
  Sender: FDA-Public Use
  Company Number: MEDI-0005599

PATIENT
  Age: 9 Month
  Sex: Female

DRUGS (1)
  1. SYNAGIS [Suspect]
     Dates: start: 20060902, end: 20060902

REACTIONS (4)
  - BRONCHIOLITIS [None]
  - ELECTROLYTE IMBALANCE [None]
  - FLUID IMBALANCE [None]
  - PNEUMONIA [None]
